FAERS Safety Report 18502293 (Version 1)
Quarter: 2020Q4

REPORT INFORMATION
  Report Type: Other
  Country: US (occurrence: US)
  Receive Date: 20201113
  Receipt Date: 20201113
  Transmission Date: 20210114
  Serious: No
  Sender: FDA-Public Use
  Company Number: US-LEADIANT BIOSCIENCES INC-2019STPI000523

PATIENT

DRUGS (5)
  1. PROCYSBI [Concomitant]
     Active Substance: CYSTEAMINE BITARTRATE
  2. GLIPIZIDE. [Concomitant]
     Active Substance: GLIPIZIDE
  3. PROGRAF [Concomitant]
     Active Substance: TACROLIMUS
  4. CYSTARAN [Suspect]
     Active Substance: CYSTEAMINE HYDROCHLORIDE
     Indication: CORNEAL DYSTROPHY
     Dosage: 1 DROP, QH
     Route: 047
     Dates: start: 20140822
  5. PEPCID [ALUMINIUM HYDROXIDE GEL, DRIED;MAGNESIUM CARBONATE] [Concomitant]
     Active Substance: ALUMINUM HYDROXIDE\MAGNESIUM CARBONATE

REACTIONS (1)
  - Eye infection [Not Recovered/Not Resolved]
